FAERS Safety Report 17511809 (Version 1)
Quarter: 2020Q1

REPORT INFORMATION
  Report Type: Spontaneous
  Country: SK (occurrence: SK)
  Receive Date: 20200308
  Receipt Date: 20200308
  Transmission Date: 20200409
  Serious: Yes (Hospitalization)
  Sender: FDA-Public Use
  Company Number: NVSC2020SK062979

PATIENT
  Age: 53 Year
  Sex: Male
  Weight: 180 kg

DRUGS (1)
  1. ACLASTA [Suspect]
     Active Substance: ZOLEDRONIC ACID
     Indication: BACK DISORDER
     Dosage: 1 DF, Q12MO
     Route: 065
     Dates: start: 20191120, end: 20191120

REACTIONS (5)
  - Asthenia [Unknown]
  - Loss of consciousness [Unknown]
  - Syncope [Unknown]
  - Pyrexia [Unknown]
  - Back pain [Unknown]

NARRATIVE: CASE EVENT DATE: 20191121
